FAERS Safety Report 15615137 (Version 1)
Quarter: 2018Q4

REPORT INFORMATION
  Report Type: Spontaneous
  Country: US (occurrence: US)
  Receive Date: 20181114
  Receipt Date: 20181114
  Transmission Date: 20190205
  Serious: No
  Sender: FDA-Public Use
  Company Number: US-ASTRAZENECA-2018SF37634

PATIENT
  Age: 60 Year
  Sex: Female
  Weight: 84.8 kg

DRUGS (1)
  1. FARXIGA [Suspect]
     Active Substance: DAPAGLIFLOZIN PROPANEDIOL
     Indication: TYPE 2 DIABETES MELLITUS
     Route: 048
     Dates: start: 2018

REACTIONS (12)
  - Nasal congestion [Unknown]
  - Blood glucose increased [Unknown]
  - Fungal infection [Unknown]
  - Pain [Unknown]
  - Drug ineffective [Unknown]
  - Malaise [Unknown]
  - Dysphagia [Unknown]
  - Pharyngeal oedema [Unknown]
  - Headache [Unknown]
  - Sensation of foreign body [Unknown]
  - Irritability [Unknown]
  - Sinusitis [Unknown]

NARRATIVE: CASE EVENT DATE: 2018
